FAERS Safety Report 4982444-2 (Version None)
Quarter: 2006Q2

REPORT INFORMATION
  Report Type: 
  Country: None (occurrence: None)
  Receive Date: 20060421
  Receipt Date: 20060407
  Transmission Date: 20061013
  Serious: Yes (Other)
  Sender: FDA-Public Use
  Company Number: 2006S1000073

PATIENT
  Age: 85 Year
  Sex: Male

DRUGS (2)
  1. CUBICIN [Suspect]
     Indication: ARTHRITIS INFECTIVE
     Dosage: 375 MG; Q24H; IV
     Route: 042
     Dates: start: 20060104, end: 20060221
  2. CUBICIN [Suspect]
     Indication: DEVICE RELATED INFECTION
     Dosage: 375 MG; Q24H; IV
     Route: 042
     Dates: start: 20060104, end: 20060221

REACTIONS (2)
  - CRYPTOGENIC ORGANIZING PNEUMONIA [None]
  - WEIGHT DECREASED [None]
